FAERS Safety Report 7360829-7 (Version None)
Quarter: 2011Q1

REPORT INFORMATION
  Report Type: 
  Country: None (occurrence: None)
  Receive Date: 20110318
  Receipt Date: 20110314
  Transmission Date: 20110831
  Serious: Yes (Hospitalization)
  Sender: FDA-Public Use
  Company Number: BR-US-EMD SERONO, INC.-7045310

PATIENT
  Sex: Female

DRUGS (8)
  1. VENLAFAXINE [Concomitant]
  2. FAMOTIDINE [Concomitant]
  3. REBIF [Suspect]
     Dates: start: 20110201
  4. TIZANIDINE [Concomitant]
  5. CHLORPROMAZINE (MANIPULATED) [Concomitant]
  6. REBIF [Suspect]
     Indication: RELAPSING-REMITTING MULTIPLE SCLEROSIS
     Dates: start: 20100104, end: 20110121
  7. AMYTRIPTYLINE [Concomitant]
  8. GABAPENTIN [Concomitant]

REACTIONS (6)
  - INTERVERTEBRAL DISC PROTRUSION [None]
  - EXOSTOSIS [None]
  - INJECTION SITE PAIN [None]
  - MICTURITION URGENCY [None]
  - COGNITIVE DISORDER [None]
  - INJECTION SITE HAEMATOMA [None]
